FAERS Safety Report 8987839 (Version 2)
Quarter: 2013Q1

REPORT INFORMATION
  Report Type: Report from Study
  Country: US (occurrence: US)
  Receive Date: 20121227
  Receipt Date: 20130117
  Transmission Date: 20140127
  Serious: Yes (Death, Hospitalization)
  Sender: FDA-Public Use
  Company Number: US-PFIZER INC-2012326990

PATIENT
  Age: 69 Year
  Sex: Male
  Weight: 67 kg

DRUGS (1)
  1. CRIZOTINIB [Suspect]
     Indication: HEPATIC CANCER
     Dosage: 250 MG, 2X/DAY
     Route: 048
     Dates: start: 20121101

REACTIONS (1)
  - Death [Fatal]
